FAERS Safety Report 19834990 (Version 1)
Quarter: 2021Q3

REPORT INFORMATION
  Report Type: Report from Study
  Country: None (occurrence: US)
  Receive Date: 20210915
  Receipt Date: 20210915
  Transmission Date: 20211014
  Serious: Yes (Hospitalization, Other)
  Sender: FDA-Public Use
  Company Number: US-ABBVIE-21K-163-4074074-00

PATIENT
  Sex: Female

DRUGS (1)
  1. HUMIRA [Suspect]
     Active Substance: ADALIMUMAB
     Indication: ANKYLOSING SPONDYLITIS
     Dosage: CITRATE FREE
     Route: 058

REACTIONS (6)
  - Abdominal abscess [Unknown]
  - Back pain [Not Recovered/Not Resolved]
  - Cyst [Recovered/Resolved]
  - Device use error [Unknown]
  - Gallbladder operation [Unknown]
  - Nausea [Unknown]

NARRATIVE: CASE EVENT DATE: 2015
